FAERS Safety Report 25183750 (Version 1)
Quarter: 2025Q2

REPORT INFORMATION
  Report Type: Spontaneous
  Country: RU (occurrence: RU)
  Receive Date: 20250410
  Receipt Date: 20250410
  Transmission Date: 20250716
  Serious: Yes (Other)
  Sender: NOVARTIS
  Company Number: RU-002147023-NVSC2025RU058566

PATIENT
  Age: 58 Year
  Sex: Male

DRUGS (1)
  1. TEGRETOL [Suspect]
     Active Substance: CARBAMAZEPINE
     Indication: Epilepsy
     Dosage: 400 MG, BID
     Route: 048
     Dates: start: 20241218, end: 20241227

REACTIONS (1)
  - Generalised onset non-motor seizure [Recovering/Resolving]

NARRATIVE: CASE EVENT DATE: 20241220
